FAERS Safety Report 25620371 (Version 1)
Quarter: 2025Q3

REPORT INFORMATION
  Report Type: Spontaneous
  Country: EU (occurrence: EU)
  Receive Date: 20250730
  Receipt Date: 20250730
  Transmission Date: 20251020
  Serious: Yes (Other)
  Sender: AUROBINDO
  Company Number: EU-BRISTOL-MYERS SQUIBB COMPANY-2025-095567

PATIENT
  Age: 66 Year
  Sex: Male

DRUGS (6)
  1. PEMETREXED [Suspect]
     Active Substance: PEMETREXED
     Indication: Lung adenocarcinoma
     Route: 065
     Dates: start: 20230228
  2. NIVOLUMAB [Suspect]
     Active Substance: NIVOLUMAB
     Indication: Lung adenocarcinoma
     Route: 065
     Dates: start: 20230228
  3. NELVUTAMIG [Suspect]
     Active Substance: NELVUTAMIG
     Indication: Lung adenocarcinoma
     Route: 065
     Dates: start: 20230228
  4. CISPLATIN [Suspect]
     Active Substance: CISPLATIN
     Indication: Lung adenocarcinoma
     Route: 065
     Dates: start: 20230228
  5. OMEPRAZOLE [Concomitant]
     Active Substance: OMEPRAZOLE
     Indication: Product used for unknown indication
     Dosage: 40 MILLIGRAM, ONCE A DAY
     Route: 065
  6. COVERAM [Concomitant]
     Active Substance: AMLODIPINE\PERINDOPRIL
     Indication: Product used for unknown indication
     Route: 065

REACTIONS (9)
  - Tertiary adrenal insufficiency [Unknown]
  - Tubulointerstitial nephritis [Unknown]
  - Renal impairment [Unknown]
  - Diarrhoea [Unknown]
  - Decreased appetite [Unknown]
  - Weight decreased [Unknown]
  - Leukocyturia [Unknown]
  - Proteinuria [Unknown]
  - Gastrointestinal inflammation [Unknown]

NARRATIVE: CASE EVENT DATE: 20240117
